FAERS Safety Report 7397655-9 (Version None)
Quarter: 2011Q2

REPORT INFORMATION
  Report Type: 
  Country: None (occurrence: None)
  Receive Date: 20110406
  Receipt Date: 20110324
  Transmission Date: 20111010
  Serious: Yes (Hospitalization, Other)
  Sender: FDA-Public Use
  Company Number: PHHY2011NL24969

PATIENT
  Age: 63 Year
  Sex: Male

DRUGS (4)
  1. AMLODIPINE [Suspect]
     Indication: HYPERTENSION
     Dosage: 5 MG, UNK
  2. SUNITINIB MALATE [Suspect]
     Dosage: 50 MG, QD
  3. SUNITINIB MALATE [Suspect]
     Dosage: 37.5 MG, QD
  4. SUNITINIB MALATE [Suspect]
     Dosage: 25 MG, QD

REACTIONS (8)
  - SLEEP DISORDER [None]
  - HALLUCINATION, VISUAL [None]
  - BLOOD SODIUM DECREASED [None]
  - PSYCHOTIC DISORDER [None]
  - DELUSION [None]
  - DEPRESSION [None]
  - PALMAR-PLANTAR ERYTHRODYSAESTHESIA SYNDROME [None]
  - BLOOD LACTATE DEHYDROGENASE INCREASED [None]
